FAERS Safety Report 18518300 (Version 2)
Quarter: 2021Q1

REPORT INFORMATION
  Report Type: Spontaneous
  Country: DE (occurrence: DE)
  Receive Date: 20201118
  Receipt Date: 20210226
  Transmission Date: 20210419
  Serious: Yes (Other)
  Sender: FDA-Public Use
  Company Number: DE-BIOGEN-2020BI00947936

PATIENT
  Age: 30 Year
  Sex: Female

DRUGS (5)
  1. TYSABRI [Suspect]
     Active Substance: NATALIZUMAB
     Indication: RELAPSING-REMITTING MULTIPLE SCLEROSIS
     Route: 042
     Dates: start: 20161229, end: 20170323
  2. TYSABRI [Suspect]
     Active Substance: NATALIZUMAB
     Route: 042
  3. L?THYROXIN [Concomitant]
     Active Substance: LEVOTHYROXINE SODIUM
     Indication: THYROID DISORDER
     Route: 065
     Dates: start: 20161231
  4. LUTINUS [Concomitant]
     Active Substance: PROGESTERONE
     Indication: PROPHYLAXIS
     Route: 065
     Dates: start: 20170427
  5. CORTISONE [Concomitant]
     Active Substance: CORTISONE
     Indication: MULTIPLE SCLEROSIS RELAPSE
     Route: 065
     Dates: start: 20170107, end: 20170109

REACTIONS (3)
  - Haemorrhage [Unknown]
  - Maternal exposure during pregnancy [Recovered/Resolved]
  - Abortion spontaneous [Recovered/Resolved]

NARRATIVE: CASE EVENT DATE: 201704
